FAERS Safety Report 5838092-5 (Version None)
Quarter: 2008Q3

REPORT INFORMATION
  Report Type: 
  Country: None (occurrence: None)
  Receive Date: 20080808
  Receipt Date: 20080611
  Transmission Date: 20090109
  Serious: No
  Sender: FDA-Public Use
  Company Number: A0732446A

PATIENT
  Age: 40 Year
  Sex: Female

DRUGS (2)
  1. PAXIL [Suspect]
     Dosage: 20MG PER DAY
     Route: 048
     Dates: start: 20080101, end: 20080501
  2. NO CONCURRENT MEDICATION [Concomitant]

REACTIONS (3)
  - DIZZINESS [None]
  - DRUG EXPOSURE DURING PREGNANCY [None]
  - NAUSEA [None]
